FAERS Safety Report 7528737-6 (Version None)
Quarter: 2011Q2

REPORT INFORMATION
  Report Type: 
  Country: None (occurrence: None)
  Receive Date: 20110607
  Receipt Date: 20101227
  Transmission Date: 20111010
  Serious: No
  Sender: FDA-Public Use
  Company Number: US-ASTRAZENECA-2011SE01014

PATIENT
  Sex: Female

DRUGS (1)
  1. PRILOSEC OTC [Suspect]
     Route: 048
     Dates: start: 20101226, end: 20101226

REACTIONS (4)
  - EAR DISCOMFORT [None]
  - ERYTHEMA [None]
  - URTICARIA [None]
  - PYREXIA [None]
